FAERS Safety Report 5647513-2 (Version None)
Quarter: 2008Q1

REPORT INFORMATION
  Report Type: 
  Country: None (occurrence: None)
  Receive Date: 20080303
  Receipt Date: 20080218
  Transmission Date: 20080703
  Serious: Yes (Hospitalization, Other)
  Sender: FDA-Public Use
  Company Number: US-ELI_LILLY_AND_COMPANY-US200801000207

PATIENT
  Sex: Female

DRUGS (9)
  1. EVISTA [Suspect]
     Indication: OSTEOPOROSIS
     Dosage: 60 MG, DAILY (1/D)
     Dates: start: 20020201, end: 20070501
  2. FORTEO [Suspect]
     Dosage: UNK, UNK
     Dates: start: 20070501
  3. LEXAPRO [Concomitant]
  4. LISINOPRIL [Concomitant]
  5. ACIPHEX [Concomitant]
  6. ASPIRIN [Concomitant]
  7. IMIPRAMINE [Concomitant]
  8. POTASSIUM CHLORIDE [Concomitant]
  9. CALCIUM WITH VITAMIN D [Concomitant]

REACTIONS (12)
  - ADHESION [None]
  - BONE DENSITY DECREASED [None]
  - BONE DISORDER [None]
  - DRUG INEFFECTIVE [None]
  - FALL [None]
  - HIP FRACTURE [None]
  - INJECTION SITE HAEMORRHAGE [None]
  - MUSCULOSKELETAL PAIN [None]
  - OEDEMA PERIPHERAL [None]
  - RADIUS FRACTURE [None]
  - ROTATOR CUFF SYNDROME [None]
  - SKIN LACERATION [None]
